FAERS Safety Report 5407941-7 (Version None)
Quarter: 2007Q3

REPORT INFORMATION
  Report Type: 
  Country: None (occurrence: None)
  Receive Date: 20070803
  Receipt Date: 20070719
  Transmission Date: 20080115
  Serious: No
  Sender: FDA-Public Use
  Company Number: 8025530

PATIENT
  Age: 67 Year
  Sex: Male
  Weight: 119.1 kg

DRUGS (14)
  1. KEPPRA [Suspect]
     Indication: CONVULSION
     Dosage: 1000 MG 2/D
     Dates: start: 20070707
  2. CATAPRES-TTS-1 [Concomitant]
  3. NITRO-BID [Concomitant]
  4. LOPRESSOR [Concomitant]
  5. PHENOBARB /00023202/ [Concomitant]
  6. BUMEX [Concomitant]
  7. PREVACID [Concomitant]
  8. MIRALAX [Concomitant]
  9. DECADRON [Concomitant]
  10. PROVIGIL [Concomitant]
  11. NOVOLIN N [Concomitant]
  12. VANCOMYCIN [Concomitant]
  13. ZOSYN [Concomitant]
  14. TYLENOL /00724201/ [Concomitant]

REACTIONS (2)
  - DRUG ADMINISTRATION ERROR [None]
  - INCORRECT ROUTE OF DRUG ADMINISTRATION [None]
